FAERS Safety Report 17087369 (Version 1)
Quarter: 2019Q4

REPORT INFORMATION
  Report Type: Spontaneous
  Country: JP (occurrence: JP)
  Receive Date: 20191128
  Receipt Date: 20191128
  Transmission Date: 20200122
  Serious: Yes (Death, Other)
  Sender: FDA-Public Use
  Company Number: JP-AMGEN-JPNSP2019196628

PATIENT

DRUGS (1)
  1. BLINATUMOMAB [Suspect]
     Active Substance: BLINATUMOMAB
     Indication: MALIGNANT LYMPHOID NEOPLASM
     Dosage: UNK
     Route: 065

REACTIONS (6)
  - Acute graft versus host disease [Unknown]
  - Varicella zoster virus infection [Fatal]
  - Acute lymphocytic leukaemia recurrent [Fatal]
  - Fungal infection [Fatal]
  - Respiratory syncytial virus infection [Fatal]
  - Non-Hodgkin^s lymphoma [Fatal]
